FAERS Safety Report 11203142 (Version 1)
Quarter: 2015Q2

REPORT INFORMATION
  Report Type: Spontaneous
  Country: CN (occurrence: CN)
  Receive Date: 20150619
  Receipt Date: 20150619
  Transmission Date: 20150821
  Serious: Yes (Hospitalization)
  Sender: FDA-Public Use
  Company Number: CN-JNJFOC-20150514599

PATIENT
  Age: 86 Year
  Sex: Male

DRUGS (3)
  1. RISPERDAL [Suspect]
     Active Substance: RISPERIDONE
     Indication: SENILE DEMENTIA
     Route: 048
     Dates: start: 20150504
  2. RISPERDAL [Suspect]
     Active Substance: RISPERIDONE
     Indication: SENILE DEMENTIA
     Route: 048
     Dates: start: 20150501
  3. RISPERDAL [Suspect]
     Active Substance: RISPERIDONE
     Indication: SENILE DEMENTIA
     Route: 048
     Dates: start: 2015

REACTIONS (9)
  - Peripheral swelling [Recovering/Resolving]
  - Off label use [Unknown]
  - Pyrexia [Recovered/Resolved]
  - Dysphoria [Recovered/Resolved]
  - Wrong technique in drug usage process [Unknown]
  - Mania [Not Recovered/Not Resolved]
  - Bone formation increased [Not Recovered/Not Resolved]
  - Peripheral swelling [Recovered/Resolved]
  - Somnolence [Recovered/Resolved]

NARRATIVE: CASE EVENT DATE: 20150420
